FAERS Safety Report 9394374 (Version 2)
Quarter: 2013Q3

REPORT INFORMATION
  Report Type: Spontaneous
  Country: US (occurrence: US)
  Receive Date: 20130711
  Receipt Date: 20130817
  Transmission Date: 20140515
  Serious: Yes (Death)
  Sender: FDA-Public Use
  Company Number: US-009507513-1307USA004284

PATIENT
  Age: 58 Year
  Sex: Male

DRUGS (8)
  1. REMERON [Suspect]
     Indication: DEPRESSION
  2. TRAMADOL HYDROCHLORIDE [Suspect]
  3. HYDROXYZINE [Suspect]
     Dosage: 75 MG DAILY DOSE (3, 25 MG TABLETS)
  4. TRAZODONE HYDROCHLORIDE [Suspect]
  5. DULOXETINE HYDROCHLORIDE [Suspect]
  6. GABAPENTIN [Suspect]
  7. TRIMETHOPRIM [Suspect]
  8. SULFAMETHOXAZOLE [Suspect]

REACTIONS (2)
  - Accidental overdose [Fatal]
  - Toxicity to various agents [Fatal]
